FAERS Safety Report 7212865-9 (Version None)
Quarter: 2011Q1

REPORT INFORMATION
  Report Type: 
  Country: None (occurrence: None)
  Receive Date: 20110106
  Receipt Date: 20101227
  Transmission Date: 20110831
  Serious: Yes (Other)
  Sender: FDA-Public Use
  Company Number: PHHY2010DE61589

PATIENT
  Sex: Male

DRUGS (16)
  1. LAMISIL [Suspect]
     Dosage: 28 TABLETS
     Route: 048
     Dates: start: 20100218
  2. OMNIFLORA [Concomitant]
     Dosage: 50 CAPSULES
     Route: 048
     Dates: start: 20091201
  3. LAMISIL [Suspect]
     Dosage: 28 TABLETS
     Route: 048
     Dates: start: 20091029
  4. KARISON [Concomitant]
     Dosage: 15 G, UNK
     Dates: start: 20091029
  5. ALMIRALI HERMAL [Concomitant]
     Dosage: 50 G
     Dates: start: 20100624
  6. DUOGALEN [Concomitant]
     Dosage: 5 G
     Dates: start: 20100624
  7. OMNIFLORA [Concomitant]
     Dosage: 50 CAPSULES
     Route: 048
     Dates: start: 20090715
  8. LAMISIL [Suspect]
     Indication: ONYCHOMYCOSIS
     Dosage: 28 TABLETS
     Route: 048
     Dates: start: 20090622
  9. EXFORGE [Concomitant]
     Indication: HYPERTENSION
     Route: 048
  10. OMNIFLORA [Concomitant]
     Dosage: 50 CAPSULES
     Route: 048
     Dates: start: 20090804
  11. OMNIFLORA [Concomitant]
     Dosage: 50 CAPSULES
     Route: 048
     Dates: start: 20091029
  12. OMNIFLORA [Concomitant]
     Dosage: 50 CAPSULES
     Route: 048
     Dates: start: 20100218
  13. LAMISIL [Suspect]
     Dosage: 250 MG
     Route: 048
     Dates: start: 20100914
  14. LAMISIL [Suspect]
     Dosage: 14 TABLETS
     Route: 048
     Dates: start: 20100624
  15. OMNIFLORA [Concomitant]
     Dosage: 50 CAPSULES
     Route: 048
     Dates: start: 20090829
  16. SOLARAZE [Concomitant]
     Dosage: 3 %
     Dates: start: 20100624

REACTIONS (25)
  - BLOOD CREATINE PHOSPHOKINASE MB INCREASED [None]
  - BLOOD IRON INCREASED [None]
  - MYOPATHY TOXIC [None]
  - LIVER FUNCTION TEST ABNORMAL [None]
  - ASPARTATE AMINOTRANSFERASE INCREASED [None]
  - DYSGEUSIA [None]
  - BLOOD CHOLESTEROL INCREASED [None]
  - BLOOD CREATINE PHOSPHOKINASE INCREASED [None]
  - TOXICITY TO VARIOUS AGENTS [None]
  - BLOOD LACTATE DEHYDROGENASE INCREASED [None]
  - BLOOD PRESSURE INCREASED [None]
  - SKIN BURNING SENSATION [None]
  - LIVER DISORDER [None]
  - ARTHRALGIA [None]
  - RHABDOMYOLYSIS [None]
  - HEPATIC ENZYME INCREASED [None]
  - MYALGIA [None]
  - LYMPHOCYTE COUNT DECREASED [None]
  - MEAN CELL HAEMOGLOBIN DECREASED [None]
  - EOSINOPHIL COUNT INCREASED [None]
  - TONGUE DISCOLOURATION [None]
  - ALANINE AMINOTRANSFERASE INCREASED [None]
  - RENAL CYST [None]
  - PAIN [None]
  - GENERAL PHYSICAL HEALTH DETERIORATION [None]
